FAERS Safety Report 23764982 (Version 1)
Quarter: 2024Q2

REPORT INFORMATION
  Report Type: Spontaneous
  Country: US (occurrence: None)
  Receive Date: 20240420
  Receipt Date: 20240420
  Transmission Date: 20240716
  Serious: No
  Sender: FDA-Public Use
  Company Number: 2024A086195

PATIENT
  Sex: Female

DRUGS (1)
  1. FARXIGA [Suspect]
     Active Substance: DAPAGLIFLOZIN PROPANEDIOL
     Route: 048

REACTIONS (6)
  - Genital burning sensation [Unknown]
  - Genital exfoliation [Unknown]
  - Fungal infection [Unknown]
  - Tenderness [Unknown]
  - Genital pain [Unknown]
  - Genital swelling [Unknown]
